FAERS Safety Report 8795005 (Version 2)
Quarter: 2015Q2

REPORT INFORMATION
  Report Type: Report from Study
  Country: US (occurrence: US)
  Receive Date: 20120917
  Receipt Date: 20150405
  Transmission Date: 20150821
  Serious: Yes (Death)
  Sender: FDA-Public Use
  Company Number: US-ROCHE-1128480

PATIENT
  Sex: Female
  Weight: 78 kg

DRUGS (2)
  1. AVASTIN [Suspect]
     Active Substance: BEVACIZUMAB
     Indication: BREAST CANCER FEMALE
     Route: 042
     Dates: start: 20050608
  2. ABRAXANE [Concomitant]
     Active Substance: PACLITAXEL

REACTIONS (2)
  - Death [Fatal]
  - Off label use [Unknown]
